FAERS Safety Report 21073613 (Version 1)
Quarter: 2022Q3

REPORT INFORMATION
  Report Type: Spontaneous
  Country: CN (occurrence: None)
  Receive Date: 20220713
  Receipt Date: 20220713
  Transmission Date: 20221027
  Serious: Yes (Hospitalization)
  Sender: FDA-Public Use
  Company Number: 2022A246386

PATIENT
  Age: 6437 Day
  Sex: Female

DRUGS (4)
  1. QUETIAPINE FUMARATE [Suspect]
     Active Substance: QUETIAPINE FUMARATE
     Indication: Affective disorder
     Route: 048
     Dates: start: 20220210, end: 20220507
  2. QUETIAPINE FUMARATE [Suspect]
     Active Substance: QUETIAPINE FUMARATE
     Indication: Affective disorder
     Route: 048
  3. VORTIOXETINE [Concomitant]
     Active Substance: VORTIOXETINE
     Indication: Depression
     Route: 048
     Dates: start: 20220322, end: 20220507
  4. BLONANSERIN [Concomitant]
     Active Substance: BLONANSERIN
     Indication: Affective disorder
     Route: 048
     Dates: start: 20220322, end: 20220507

REACTIONS (4)
  - Skin wound [Unknown]
  - Scab [Unknown]
  - Galactorrhoea [Recovering/Resolving]
  - Blood prolactin increased [Recovering/Resolving]

NARRATIVE: CASE EVENT DATE: 20220329
